FAERS Safety Report 20842976 (Version 2)
Quarter: 2022Q2

REPORT INFORMATION
  Report Type: Spontaneous
  Country: US (occurrence: US)
  Receive Date: 20220518
  Receipt Date: 20220617
  Transmission Date: 20220720
  Serious: No
  Sender: FDA-Public Use
  Company Number: US-GSKCCFUS-Case-01379294_AE-79689

PATIENT
  Age: 77 Year
  Sex: Female

DRUGS (1)
  1. TRELEGY ELLIPTA [Suspect]
     Active Substance: FLUTICASONE FUROATE\UMECLIDINIUM BROMIDE\VILANTEROL TRIFENATATE
     Indication: Product used for unknown indication
     Dosage: 100 MCG/MG
     Dates: start: 20220516

REACTIONS (1)
  - Dizziness [Recovered/Resolved]

NARRATIVE: CASE EVENT DATE: 20220516
